FAERS Safety Report 25912882 (Version 1)
Quarter: 2025Q4

REPORT INFORMATION
  Report Type: Spontaneous
  Country: US (occurrence: US)
  Receive Date: 20251013
  Receipt Date: 20251013
  Transmission Date: 20260117
  Serious: No
  Sender: INVENTIA HEALTHCARE PRIVATE LIMITED
  Company Number: US-Inventia-000758

PATIENT
  Age: 70 Year
  Sex: Male
  Weight: 82.55 kg

DRUGS (2)
  1. LANSOPRAZOLE [Suspect]
     Active Substance: LANSOPRAZOLE
     Indication: Gastrooesophageal reflux disease
     Dosage: QD 30MG
  2. LANSOPRAZOLE [Suspect]
     Active Substance: LANSOPRAZOLE
     Indication: Barrett^s oesophagus
     Dosage: QD 30MG

REACTIONS (1)
  - Disturbance in attention [Unknown]
